FAERS Safety Report 9501458 (Version 6)
Quarter: 2014Q1

REPORT INFORMATION
  Report Type: Spontaneous
  Country: JP (occurrence: JP)
  Receive Date: 20130905
  Receipt Date: 20140127
  Transmission Date: 20141002
  Serious: Yes (Hospitalization, Other)
  Sender: FDA-Public Use
  Company Number: JP-ELI_LILLY_AND_COMPANY-JP201308005850

PATIENT
  Age: 79 Year
  Sex: Male
  Weight: 59.1 kg

DRUGS (17)
  1. ALIMTA [Suspect]
     Indication: LUNG ADENOCARCINOMA
     Dosage: 875 MG, UNK
     Route: 042
     Dates: start: 20120706, end: 20121116
  2. ALIMTA [Suspect]
     Dosage: 875 MG, UNK
     Route: 042
     Dates: start: 20121214, end: 20130426
  3. ALIMTA [Suspect]
     Dosage: 800 MG, UNK
     Route: 042
     Dates: start: 20130524, end: 20130524
  4. ALIMTA [Suspect]
     Dosage: 625 MG, UNK
     Route: 042
     Dates: start: 20130620, end: 20130620
  5. CARBOPLATIN [Concomitant]
     Indication: LUNG ADENOCARCINOMA
     Dosage: 480 MG, UNK
     Route: 042
     Dates: start: 20120706, end: 20121116
  6. DEXART [Concomitant]
     Indication: PRODUCT USED FOR UNKNOWN INDICATION
     Dosage: 6.6 MG, UNK
     Route: 065
     Dates: start: 20120706
  7. ALOXI [Concomitant]
     Indication: PROPHYLAXIS OF NAUSEA AND VOMITING
     Dosage: 0.75 MG, UNK
     Route: 042
     Dates: start: 20120706, end: 20121116
  8. FOSAPREPITANT MEGLUMINE [Concomitant]
     Indication: PRODUCT USED FOR UNKNOWN INDICATION
     Dosage: 150 MG, UNK
     Route: 042
     Dates: start: 20120706, end: 20121116
  9. KYTRIL [Concomitant]
     Indication: PROPHYLAXIS OF NAUSEA AND VOMITING
     Dosage: 3 MG, UNK
     Route: 042
     Dates: start: 20121214, end: 20130104
  10. GRANISETRON HYDROCHLORIDE [Concomitant]
     Indication: PRODUCT USED FOR UNKNOWN INDICATION
     Dosage: 3 MG, UNK
     Route: 042
     Dates: start: 20130301, end: 20130620
  11. PANVITAN                           /00466101/ [Concomitant]
     Indication: PRODUCT USED FOR UNKNOWN INDICATION
     Dosage: 1 G, UNK
     Route: 048
     Dates: start: 20130620, end: 20130808
  12. EPINASTINE [Concomitant]
     Indication: PRODUCT USED FOR UNKNOWN INDICATION
     Dosage: 20 MG, UNK
     Route: 048
     Dates: start: 20130620, end: 20130808
  13. NU-LOTAN [Concomitant]
     Indication: PRODUCT USED FOR UNKNOWN INDICATION
     Dosage: 50 MG, QD
     Route: 048
     Dates: start: 20130620, end: 20130808
  14. NAUZELIN [Concomitant]
     Indication: PRODUCT USED FOR UNKNOWN INDICATION
     Dosage: 10 MG, TID
     Dates: start: 20130620, end: 20130808
  15. GASMOTIN [Concomitant]
     Indication: PRODUCT USED FOR UNKNOWN INDICATION
     Dosage: 5 MG, UNK
     Dates: start: 20130620, end: 20130808
  16. DECADRAN                           /00016001/ [Concomitant]
     Indication: PRODUCT USED FOR UNKNOWN INDICATION
     Dosage: 20 MG, UNKNOWN
     Route: 065
     Dates: start: 20130620, end: 20130624
  17. GAMOFA [Concomitant]
     Indication: PRODUCT USED FOR UNKNOWN INDICATION
     Dosage: 40 MG, UNK
     Route: 065
     Dates: start: 20130620, end: 20130624

REACTIONS (3)
  - Tubulointerstitial nephritis [Recovering/Resolving]
  - Hyponatraemia [Unknown]
  - Anaemia [Unknown]
